FAERS Safety Report 12944516 (Version 1)
Quarter: 2016Q4

REPORT INFORMATION
  Report Type: Spontaneous
  Country: US (occurrence: US)
  Receive Date: 20161115
  Receipt Date: 20161115
  Transmission Date: 20170207
  Serious: Yes (Disabling, Other)
  Sender: FDA-Public Use
  Company Number: None

PATIENT
  Age: 26 Year
  Sex: Female
  Weight: 70.37 kg

DRUGS (7)
  1. NEXIUM [Concomitant]
     Active Substance: ESOMEPRAZOLE MAGNESIUM
  2. VYVANSE [Concomitant]
     Active Substance: LISDEXAMFETAMINE DIMESYLATE
  3. ZYRTEC [Concomitant]
     Active Substance: CETIRIZINE HYDROCHLORIDE
  4. SYNTHROID [Concomitant]
     Active Substance: LEVOTHYROXINE SODIUM
  5. FLUOXETINE [Concomitant]
     Active Substance: FLUOXETINE HYDROCHLORIDE
  6. NEXPLANON [Suspect]
     Active Substance: ETONOGESTREL
     Indication: CONTRACEPTION
     Dosage: 1 IMPLANT(SUBDERMAL) EXPIRES IN 3 YRS GIVEN INTO/UNDER THE SKIN
     Route: 059
     Dates: start: 20131003, end: 20160712
  7. OXYBUTYNIN [Concomitant]
     Active Substance: OXYBUTYNIN

REACTIONS (13)
  - Goitre [None]
  - Musculoskeletal stiffness [None]
  - Decreased appetite [None]
  - Lymphadenopathy [None]
  - Antinuclear antibody positive [None]
  - Amnesia [None]
  - Depression [None]
  - Joint stiffness [None]
  - Speech disorder [None]
  - Chest pain [None]
  - Yellow skin [None]
  - Pain [None]
  - Hypothyroidism [None]

NARRATIVE: CASE EVENT DATE: 20150701
